APPROVED DRUG PRODUCT: TURGEX
Active Ingredient: HEXACHLOROPHENE
Strength: 3%
Dosage Form/Route: EMULSION;TOPICAL
Application: N019055 | Product #001
Applicant: XTTRIUM LABORATORIES INC
Approved: Nov 30, 1984 | RLD: No | RS: No | Type: DISCN